FAERS Safety Report 9850856 (Version 2)
Quarter: 2014Q1

REPORT INFORMATION
  Report Type: Spontaneous
  Country: US (occurrence: US)
  Receive Date: 20140128
  Receipt Date: 20140204
  Transmission Date: 20141002
  Serious: Yes (Hospitalization, Other)
  Sender: FDA-Public Use
  Company Number: US-DYAX CORP.-2014DX000009

PATIENT
  Age: 61 Year
  Sex: Female
  Weight: 78.09 kg

DRUGS (6)
  1. KALBITOR [Suspect]
     Indication: HEREDITARY ANGIOEDEMA
     Route: 058
     Dates: start: 20140117, end: 20140117
  2. KALBITOR [Suspect]
     Route: 058
     Dates: start: 20140114, end: 20140114
  3. KALBITOR [Suspect]
     Route: 058
     Dates: start: 20140111, end: 20140111
  4. KALBITOR [Suspect]
     Route: 058
     Dates: start: 20131231, end: 20131231
  5. KALBITOR [Suspect]
     Route: 058
     Dates: start: 20131227
  6. FIRAZYR [Concomitant]
     Indication: HEREDITARY ANGIOEDEMA
     Route: 065

REACTIONS (2)
  - Hypersensitivity [Unknown]
  - Hereditary angioedema [Unknown]
